FAERS Safety Report 6382638-8 (Version None)
Quarter: 2009Q3

REPORT INFORMATION
  Report Type: 
  Country: None (occurrence: None)
  Receive Date: 20090930
  Receipt Date: 20090924
  Transmission Date: 20100115
  Serious: No
  Sender: FDA-Public Use
  Company Number: US-JNJFOC-20090907473

PATIENT
  Sex: Male

DRUGS (1)
  1. SANDOS FENTANYL TRANSDERMAL SYSTEM [Suspect]
     Indication: DRUG USE FOR UNKNOWN INDICATION
     Route: 062
     Dates: start: 20090901

REACTIONS (1)
  - WRONG TECHNIQUE IN DRUG USAGE PROCESS [None]
